FAERS Safety Report 6758442-5 (Version None)
Quarter: 2010Q2

REPORT INFORMATION
  Report Type: 
  Country: None (occurrence: None)
  Receive Date: 20100607
  Receipt Date: 20100528
  Transmission Date: 20101027
  Serious: Yes (Death)
  Sender: FDA-Public Use
  Company Number: A0857142A

PATIENT
  Sex: Male

DRUGS (1)
  1. AVANDIA [Suspect]
     Indication: DIABETES MELLITUS
     Dosage: 4MG TWICE PER DAY
     Route: 048
     Dates: start: 20050823, end: 20070731

REACTIONS (4)
  - ACUTE MYOCARDIAL INFARCTION [None]
  - MENTAL DISORDER [None]
  - PAIN [None]
  - SUDDEN DEATH [None]
